FAERS Safety Report 7931029-4 (Version None)
Quarter: 2011Q4

REPORT INFORMATION
  Report Type: 
  Country: None (occurrence: None)
  Receive Date: 20111121
  Receipt Date: 20111117
  Transmission Date: 20120403
  Serious: Yes (Death, Hospitalization, Other)
  Sender: FDA-Public Use
  Company Number: PHHY2011US101008

PATIENT
  Age: 40 Year
  Sex: Male

DRUGS (4)
  1. DIVALPROEX SODIUM [Concomitant]
     Dosage: UNK
  2. METFORMIN HCL [Concomitant]
     Dosage: UNK
  3. ROSIGLITAZONE [Concomitant]
     Dosage: UNK
  4. TOPIRAMATE [Suspect]
     Dosage: UNK

REACTIONS (12)
  - BUNDLE BRANCH BLOCK RIGHT [None]
  - ELECTROCARDIOGRAM T WAVE ABNORMAL [None]
  - RESPIRATORY RATE INCREASED [None]
  - UNRESPONSIVE TO STIMULI [None]
  - HEART RATE DECREASED [None]
  - DRY SKIN [None]
  - PO2 DECREASED [None]
  - BLOOD PRESSURE DECREASED [None]
  - SUPRAVENTRICULAR TACHYCARDIA [None]
  - HYPERTHERMIA [None]
  - CARDIAC ARREST [None]
  - VENTRICULAR EXTRASYSTOLES [None]
